FAERS Safety Report 9552064 (Version 1)
Quarter: 2013Q2

REPORT INFORMATION
  Report Type: Spontaneous
  Country: US (occurrence: None)
  Receive Date: 20130524
  Receipt Date: 20130524
  Transmission Date: 20140414
  Serious: No
  Sender: FDA-Public Use
  Company Number: PHEH2013US000725

PATIENT
  Age: 51 Year
  Sex: Female
  Weight: 54.4 kg

DRUGS (6)
  1. GILENYA [Suspect]
     Indication: GAIT DISTURBANCE
     Route: 048
  2. AMPYRA [Suspect]
     Indication: GAIT DISTURBANCE
     Dates: start: 2011, end: 201208
  3. IBUPROFEN (IBUPROFEN) [Concomitant]
  4. ADDERALL (AMFETAMINE ASPARTATE, AMFETAMINE SULFATE, DEXAMFETAMINE SACCHARATE, DEXAMFETAMINE SULFATE) [Concomitant]
  5. VITAMIN D3 (COLECALCIFEROL) [Concomitant]
  6. APOVIT CALCIUM (CALCIUM) [Concomitant]

REACTIONS (3)
  - Hypotension [None]
  - Dizziness [None]
  - Drug ineffective [None]
